FAERS Safety Report 8975686 (Version 1)
Quarter: 2012Q4

REPORT INFORMATION
  Report Type: 
  Country: FR (occurrence: FR)
  Receive Date: 20121219
  Receipt Date: 20121219
  Transmission Date: 20130627
  Serious: Yes (Hospitalization)
  Sender: FDA-Public Use
  Company Number: FR-ELI_LILLY_AND_COMPANY-FR201212002937

PATIENT
  Age: 68 Year
  Sex: Female

DRUGS (4)
  1. ALIMTA [Suspect]
     Indication: METASTATIC BRONCHIAL CARCINOMA
     Dosage: 750 mg, UNK
     Route: 042
     Dates: start: 20110518, end: 20120518
  2. CISPLATINE [Concomitant]
     Indication: METASTATIC BRONCHIAL CARCINOMA
     Dosage: 113 mg, UNK
     Dates: start: 20110608, end: 20110625
  3. AVASTIN [Concomitant]
     Indication: METASTATIC BRONCHIAL CARCINOMA
     Dosage: 710 mg, UNK
     Dates: start: 20110902, end: 20120518
  4. CARBOPLATINE [Concomitant]
     Indication: METASTATIC BRONCHIAL CARCINOMA
     Dosage: 0.035 mg, UNK
     Dates: start: 20110902, end: 20110930

REACTIONS (1)
  - Myocardial infarction [Recovered/Resolved with Sequelae]
